FAERS Safety Report 13649407 (Version 7)
Quarter: 2018Q2

REPORT INFORMATION
  Report Type: Report from Study
  Country: US (occurrence: US)
  Receive Date: 20170613
  Receipt Date: 20180514
  Transmission Date: 20180711
  Serious: Yes (Hospitalization, Other)
  Sender: FDA-Public Use
  Company Number: PHEH2017US017985

PATIENT
  Age: 59 Year
  Sex: Female

DRUGS (2)
  1. GILENYA [Suspect]
     Active Substance: FINGOLIMOD HYDROCHLORIDE
     Indication: RELAPSING-REMITTING MULTIPLE SCLEROSIS
     Dosage: 0.5 MG, QD
     Route: 048
     Dates: start: 20170608, end: 20180320
  2. RITALIN [Suspect]
     Active Substance: METHYLPHENIDATE HYDROCHLORIDE
     Indication: MEMORY IMPAIRMENT
     Dosage: 5 MG, UNK
     Route: 065

REACTIONS (13)
  - Fatigue [Recovering/Resolving]
  - Hypersensitivity [Not Recovered/Not Resolved]
  - Nausea [Unknown]
  - Skin ulcer [Recovering/Resolving]
  - Muscular weakness [Recovering/Resolving]
  - Heart rate decreased [Unknown]
  - Wound secretion [Recovering/Resolving]
  - Seasonal allergy [Not Recovered/Not Resolved]
  - Poor quality sleep [Unknown]
  - Multiple sclerosis relapse [Unknown]
  - Feeling abnormal [Unknown]
  - Malaise [Unknown]
  - Initial insomnia [Recovered/Resolved]

NARRATIVE: CASE EVENT DATE: 20170608
